FAERS Safety Report 14966329 (Version 2)
Quarter: 2018Q2

REPORT INFORMATION
  Report Type: Report from Study
  Country: None (occurrence: US)
  Receive Date: 20180604
  Receipt Date: 20180625
  Transmission Date: 20180711
  Serious: Yes (Death, Life-Threatening, Hospitalization)
  Sender: FDA-Public Use
  Company Number: US-ABBVIE-18K-163-2375476-00

PATIENT
  Age: 76 Year
  Sex: Female
  Weight: 72.64 kg

DRUGS (3)
  1. HUMIRA [Suspect]
     Active Substance: ADALIMUMAB
     Route: 058
     Dates: start: 20180510, end: 20180510
  2. HUMIRA [Suspect]
     Active Substance: ADALIMUMAB
     Indication: RHEUMATOID ARTHRITIS
     Dosage: FIVE OR SIX YEARS TOTAL
     Route: 058
  3. HUMIRA [Suspect]
     Active Substance: ADALIMUMAB
     Indication: RHEUMATOID ARTHRITIS
     Dosage: FIVE OR SIX YEARS TOTAL
     Route: 058
     Dates: end: 201802

REACTIONS (11)
  - Staphylococcal infection [Unknown]
  - Cardio-respiratory arrest [Unknown]
  - Tibia fracture [Unknown]
  - Fall [Unknown]
  - Sepsis [Unknown]
  - Pneumonia [Unknown]
  - Tendon rupture [Unknown]
  - Cerebrovascular accident [Unknown]
  - Fibula fracture [Unknown]
  - Hip fracture [Unknown]
  - Hypoaesthesia [Unknown]

NARRATIVE: CASE EVENT DATE: 2014
